FAERS Safety Report 11719684 (Version 1)
Quarter: 2015Q4

REPORT INFORMATION
  Report Type: Spontaneous
  Country: US (occurrence: US)
  Receive Date: 20151110
  Receipt Date: 20151110
  Transmission Date: 20160304
  Serious: No
  Sender: FDA-Public Use
  Company Number: US-IPCA LABORATORIES LIMITED-IPC201410-000579

PATIENT
  Sex: Male

DRUGS (1)
  1. FUROSEMIDE 40 MG TABLETS [Suspect]
     Active Substance: FUROSEMIDE
     Route: 048

REACTIONS (3)
  - Renal pain [Unknown]
  - Blood urine present [Unknown]
  - Bladder disorder [Unknown]

NARRATIVE: CASE EVENT DATE: 201410
